FAERS Safety Report 6026942-1 (Version None)
Quarter: 2009Q1

REPORT INFORMATION
  Report Type: 
  Country: None (occurrence: None)
  Receive Date: 20090105
  Receipt Date: 20081229
  Transmission Date: 20090719
  Serious: Yes (Hospitalization)
  Sender: FDA-Public Use
  Company Number: US-ASTRAZENECA-2008UW28839

PATIENT
  Age: 95 Year
  Sex: Male
  Weight: 61.2 kg

DRUGS (6)
  1. SEROQUEL [Suspect]
     Indication: PSYCHOTIC DISORDER
     Route: 048
     Dates: start: 20081210, end: 20081225
  2. SEROQUEL [Suspect]
     Indication: DEMENTIA
     Route: 048
     Dates: start: 20081210, end: 20081225
  3. ZESTRIL [Concomitant]
     Route: 048
  4. ATENOLOL [Concomitant]
  5. XALATAN [Concomitant]
  6. ZOCOR [Concomitant]

REACTIONS (6)
  - ABNORMAL BEHAVIOUR [None]
  - DROOLING [None]
  - HAEMORRHAGE [None]
  - HEART RATE INCREASED [None]
  - SPEECH DISORDER [None]
  - VOMITING [None]
